FAERS Safety Report 11443660 (Version 2)
Quarter: 2015Q4

REPORT INFORMATION
  Report Type: Spontaneous
  Country: US (occurrence: US)
  Receive Date: 20150901
  Receipt Date: 20151007
  Transmission Date: 20160304
  Serious: No
  Sender: FDA-Public Use
  Company Number: US-GLAXOSMITHKLINE-US2015GSK101842

PATIENT
  Sex: Female

DRUGS (7)
  1. DIAZIDE (GLICLAZIDE) [Concomitant]
  2. ONDANSETRON HYDROCHLORIDE SOLUTION FOR INJECTION [Suspect]
     Active Substance: ONDANSETRON HYDROCHLORIDE
     Indication: VOMITING
  3. CRESTOR [Concomitant]
     Active Substance: ROSUVASTATIN CALCIUM
  4. PREVACID [Concomitant]
     Active Substance: LANSOPRAZOLE
  5. ONDANSETRON HYDROCHLORIDE SOLUTION FOR INJECTION [Suspect]
     Active Substance: ONDANSETRON HYDROCHLORIDE
     Indication: NAUSEA
     Dosage: UNK, PRN
     Route: 030
  6. ZETIA [Concomitant]
     Active Substance: EZETIMIBE
  7. ASA [Concomitant]
     Active Substance: ASPIRIN

REACTIONS (1)
  - Hypersensitivity [Unknown]
